FAERS Safety Report 7981457-6 (Version None)
Quarter: 2011Q4

REPORT INFORMATION
  Report Type: 
  Country: None (occurrence: None)
  Receive Date: 20111215
  Receipt Date: 20111208
  Transmission Date: 20120403
  Serious: Yes (Hospitalization)
  Sender: FDA-Public Use
  Company Number: US-GENZYME-MOZO-1000572

PATIENT
  Sex: Male
  Weight: 88 kg

DRUGS (23)
  1. NEUPOGEN [Concomitant]
     Indication: MYELODYSPLASTIC SYNDROME
     Dosage: 10 MCG/DAY, UNK
     Route: 058
     Dates: start: 20110815, end: 20110819
  2. HEPARIN [Concomitant]
     Indication: INTRAVENOUS CATHETER MANAGEMENT
     Dosage: 5 ML, TID
     Route: 040
     Dates: start: 20110829
  3. VIDAZA [Concomitant]
     Indication: MYELODYSPLASTIC SYNDROME
     Dosage: 75 MG/M2, UNK
     Route: 058
     Dates: start: 20110815, end: 20110819
  4. ESOMEPRAZOLE MAGNESIUM [Concomitant]
     Indication: GASTRIC DISORDER
     Dosage: 40 MG, QD
     Route: 048
     Dates: start: 20110829
  5. MOZOBIL [Suspect]
     Indication: MYELODYSPLASTIC SYNDROME
     Dosage: 320 MG/KG, QD
     Route: 058
     Dates: start: 20110815, end: 20110819
  6. DIPHENHYDRAMINE HCL [Concomitant]
     Indication: PREMEDICATION
     Dosage: 25 MG, PRN
     Route: 040
     Dates: start: 20110831, end: 20110901
  7. FUROSEMIDE [Concomitant]
     Dosage: 20 MG, QD
     Route: 048
     Dates: start: 20110829
  8. BENZOCAINE [Concomitant]
     Indication: PAIN
     Dosage: 20 %, PRN
     Route: 050
     Dates: start: 20110830, end: 20110904
  9. SODIUM CHLORIDE [Concomitant]
     Indication: MOUTH ULCERATION
     Dosage: 30 ML, QID
     Route: 046
     Dates: start: 20110829
  10. SODIUM CHLORIDE [Concomitant]
     Indication: INTRAVENOUS CATHETER MANAGEMENT
     Dosage: UNK /HR, UNK
     Route: 040
     Dates: start: 20110829
  11. SODIUM CHLORIDE [Concomitant]
     Indication: PACKED RED BLOOD CELL TRANSFUSION
     Dosage: 500 ML, UNK
     Route: 042
     Dates: start: 20110829
  12. FUROSEMIDE [Concomitant]
     Dosage: 40 MG, ONCE
     Route: 040
     Dates: start: 20110905, end: 20110905
  13. SODIUM CHLORIDE [Concomitant]
     Indication: PLATELET TRANSFUSION
     Dosage: 250 ML, UNK
     Route: 042
     Dates: start: 20110829
  14. STOMATOLOGICALS, MOUTH PREPARATIONS [Concomitant]
     Indication: MUCOSAL INFLAMMATION
     Dosage: 15 ML, PRN
     Route: 050
     Dates: start: 20110904
  15. DOCUSATE SODIUM [Concomitant]
     Indication: CONSTIPATION PROPHYLAXIS
     Dosage: 100 MG, PRN
     Route: 048
     Dates: start: 20110829
  16. DIPHENHYDRAMINE HCL [Concomitant]
     Indication: TRANSFUSION
     Dosage: 25 MG, ONCE
     Route: 040
     Dates: start: 20110830, end: 20110830
  17. DIPHENHYDRAMINE HCL [Concomitant]
     Dosage: 25 MG, PRN
     Route: 048
     Dates: start: 20110902
  18. EZETIMIBE W [Concomitant]
     Indication: HYPERLIPIDAEMIA
     Dosage: UNK FAHRENHEIT, UNK
     Route: 048
     Dates: start: 20110829
  19. FUROSEMIDE [Concomitant]
     Indication: DIURETIC THERAPY
     Dosage: 10 MG, QD
     Route: 048
     Dates: start: 20110829
  20. ONDANSETRON [Concomitant]
     Indication: NAUSEA
     Dosage: 4 MG, PRN
     Route: 040
     Dates: start: 20110829
  21. ONDANSETRON [Concomitant]
     Indication: VOMITING
  22. POLYETHYLENE GLYCOL [Concomitant]
     Indication: CONSTIPATION
     Dosage: 17 G, PRN
     Route: 048
     Dates: start: 20110829
  23. ATENOLOL [Concomitant]
     Indication: CARDIOVASCULAR DISORDER
     Dosage: 50 MG, QD
     Route: 048
     Dates: start: 20110829

REACTIONS (4)
  - PANCYTOPENIA [None]
  - FEBRILE NEUTROPENIA [None]
  - HEADACHE [None]
  - FUSOBACTERIUM INFECTION [None]
